FAERS Safety Report 8265084-1 (Version None)
Quarter: 2012Q2

REPORT INFORMATION
  Report Type: 
  Country: None (occurrence: None)
  Receive Date: 20120406
  Receipt Date: 20120402
  Transmission Date: 20120825
  Serious: No
  Sender: FDA-Public Use
  Company Number: US-PFIZER INC-2012045872

PATIENT
  Sex: Female

DRUGS (1)
  1. PREMARIN [Suspect]
     Indication: MENOPAUSAL DISORDER
     Dosage: 0.9 MG, 1X/DAY
     Route: 048
     Dates: start: 20120114

REACTIONS (2)
  - MALAISE [None]
  - HEADACHE [None]
